FAERS Safety Report 9826237 (Version 1)
Quarter: 2013Q4

REPORT INFORMATION
  Report Type: Spontaneous
  Country: GB (occurrence: None)
  Receive Date: 20131112
  Receipt Date: 20131112
  Transmission Date: 20140711
  Serious: Yes (Disabling, Other)
  Sender: FDA-Public Use
  Company Number: 2012-01238

PATIENT
  Age: 67 Year
  Sex: Female

DRUGS (5)
  1. LISINOPRIL [Suspect]
     Indication: HYPERTENSION
     Dosage: (20 MG, 2 IN 1 D)
     Route: 048
     Dates: start: 201005, end: 201104
  2. HYDRALAZINE [Concomitant]
  3. INDAPAMIDE [Concomitant]
  4. LERCANIDIPINE [Concomitant]
  5. SOTALOL [Concomitant]

REACTIONS (3)
  - Bronchitis [None]
  - Cough [None]
  - Insomnia [None]
